FAERS Safety Report 11884360 (Version 1)
Quarter: 2015Q4

REPORT INFORMATION
  Report Type: Spontaneous
  Country: US (occurrence: None)
  Receive Date: 20151231
  Receipt Date: 20151231
  Transmission Date: 20160305
  Serious: Yes (Other)
  Sender: FDA-Public Use
  Company Number: None

PATIENT
  Age: 82 Year
  Sex: Male
  Weight: 108.86 kg

DRUGS (13)
  1. RANITIDINE 300 MG AMNEAL [Suspect]
     Active Substance: RANITIDINE\RANITIDINE HYDROCHLORIDE
     Indication: HAEMATEMESIS
     Route: 048
     Dates: start: 20151226, end: 20151228
  2. LISINOPRIL. [Concomitant]
     Active Substance: LISINOPRIL
  3. FLUTICASONE [Concomitant]
     Active Substance: FLUTICASONE\FLUTICASONE PROPIONATE
  4. METOPROLOL TARTRATE. [Concomitant]
     Active Substance: METOPROLOL TARTRATE
  5. TAMSULOSIN [Concomitant]
     Active Substance: TAMSULOSIN
  6. TYLENOL#3W/CODEINE [Concomitant]
  7. LEVOTHYROXINE. [Concomitant]
     Active Substance: LEVOTHYROXINE
  8. AVODART [Concomitant]
     Active Substance: DUTASTERIDE
  9. ATORVASTATIN [Concomitant]
     Active Substance: ATORVASTATIN
  10. RANITIDINE 300 MG AMNEAL [Suspect]
     Active Substance: RANITIDINE\RANITIDINE HYDROCHLORIDE
     Indication: GASTROOESOPHAGEAL REFLUX DISEASE
     Route: 048
     Dates: start: 20151226, end: 20151228
  11. GABAPENTIN. [Concomitant]
     Active Substance: GABAPENTIN
  12. WARFARIN [Concomitant]
     Active Substance: WARFARIN
  13. AMLODIPINE [Concomitant]
     Active Substance: AMLODIPINE BESYLATE

REACTIONS (4)
  - Product quality issue [None]
  - Influenza like illness [None]
  - Abdominal pain upper [None]
  - Retching [None]

NARRATIVE: CASE EVENT DATE: 20151229
